FAERS Safety Report 6905806-2 (Version None)
Quarter: 2010Q3

REPORT INFORMATION
  Report Type: 
  Country: None (occurrence: None)
  Receive Date: 20100802
  Receipt Date: 20100802
  Transmission Date: 20110219
  Serious: Yes (Other)
  Sender: FDA-Public Use
  Company Number: None

PATIENT
  Age: 75 Year
  Sex: Female
  Weight: 79.3795 kg

DRUGS (1)
  1. ALENDRONATE SOLUTION TABS,USP 10 MG, SUBSTITUTE FOR FOSAMAX [Suspect]
     Indication: OSTEOPOROSIS
     Dosage: 70 MG. TAB WEEKLY ORAL
     Route: 048
     Dates: start: 20100501, end: 20100701

REACTIONS (2)
  - ASTHENIA [None]
  - PAIN IN EXTREMITY [None]
